FAERS Safety Report 20047031 (Version 1)
Quarter: 2021Q4

REPORT INFORMATION
  Report Type: Spontaneous
  Country: US (occurrence: None)
  Receive Date: 20211109
  Receipt Date: 20211109
  Transmission Date: 20220303
  Serious: No
  Sender: FDA-Public Use
  Company Number: None

PATIENT
  Age: 63 Year
  Sex: Male

DRUGS (1)
  1. HUMIRA [Suspect]
     Active Substance: ADALIMUMAB
     Indication: Psoriasis
     Dosage: FREQUENCY : EVERY OTHER WEEK;?
     Route: 058
     Dates: start: 202010

REACTIONS (5)
  - Incorrect dose administered [None]
  - Syringe issue [None]
  - Injection site swelling [None]
  - Injection site haemorrhage [None]
  - Needle issue [None]

NARRATIVE: CASE EVENT DATE: 20211105
